FAERS Safety Report 7339221-7 (Version None)
Quarter: 2011Q1

REPORT INFORMATION
  Report Type: 
  Country: None (occurrence: None)
  Receive Date: 20110308
  Receipt Date: 20110228
  Transmission Date: 20110831
  Serious: Yes (Other)
  Sender: FDA-Public Use
  Company Number: CA-US-EMD SERONO, INC.-7037468

PATIENT
  Sex: Male

DRUGS (16)
  1. REBIF [Suspect]
     Indication: MULTIPLE SCLEROSIS
     Route: 058
     Dates: start: 20101223
  2. FLOVEN [Concomitant]
  3. REBIF [Suspect]
  4. ANTIDEPRESSANT [Concomitant]
  5. TEVA-AMLODIPINE [Concomitant]
  6. MYLAN-PIOGLITAZONE [Concomitant]
  7. CORTISONE [Concomitant]
  8. NEXIUM [Concomitant]
  9. ELTROXIN [Concomitant]
  10. VALPROATE SODIUM [Concomitant]
  11. CIPRALEX [Concomitant]
  12. METFORMIN [Concomitant]
  13. RATIO-ATORVASTATIN [Concomitant]
  14. GLYBURIDE [Concomitant]
  15. GEN-GLYBE [Concomitant]
  16. REBIF [Suspect]

REACTIONS (4)
  - INFLUENZA LIKE ILLNESS [None]
  - RECTAL HAEMORRHAGE [None]
  - CHEST PAIN [None]
  - VOMITING [None]
